APPROVED DRUG PRODUCT: BUMEX
Active Ingredient: BUMETANIDE
Strength: 0.25MG/ML **Federal Register determination that product was not discontinued or withdrawn for safety or effectiveness reasons**
Dosage Form/Route: INJECTABLE;INJECTION
Application: N018226 | Product #001
Applicant: VALIDUS PHARMACEUTICALS LLC
Approved: Feb 28, 1983 | RLD: Yes | RS: No | Type: DISCN